FAERS Safety Report 10866297 (Version 1)
Quarter: 2015Q1

REPORT INFORMATION
  Report Type: Spontaneous
  Country: US (occurrence: None)
  Receive Date: 20150219
  Receipt Date: 20150219
  Transmission Date: 20150721
  Serious: No
  Sender: FDA-Public Use
  Company Number: None

PATIENT
  Age: 60 Year
  Sex: Female
  Weight: 63.5 kg

DRUGS (1)
  1. AMPHETAMINE [Suspect]
     Active Substance: AMPHETAMINE

REACTIONS (3)
  - Drug ineffective [None]
  - Product quality issue [None]
  - Product substitution issue [None]

NARRATIVE: CASE EVENT DATE: 20150214
